FAERS Safety Report 25963630 (Version 1)
Quarter: 2025Q4

REPORT INFORMATION
  Report Type: Spontaneous
  Country: US (occurrence: None)
  Receive Date: 20251027
  Receipt Date: 20251027
  Transmission Date: 20260117
  Serious: No
  Sender: UCB
  Company Number: US-UCBSA-2025030622

PATIENT
  Age: 92 Year

DRUGS (1)
  1. BIMZELX [Suspect]
     Active Substance: BIMEKIZUMAB-BKZX
     Indication: Seborrhoeic dermatitis
     Dosage: 320 MILLIGRAM, EV 8 WEEKS

REACTIONS (5)
  - Pruritus [Unknown]
  - Pain [Unknown]
  - Crying [Unknown]
  - Drug ineffective [Unknown]
  - Product availability issue [Unknown]
